FAERS Safety Report 6913161-7 (Version None)
Quarter: 2010Q3

REPORT INFORMATION
  Report Type: 
  Country: None (occurrence: None)
  Receive Date: 20100806
  Receipt Date: 20090916
  Transmission Date: 20110219
  Serious: No
  Sender: FDA-Public Use
  Company Number: US-PFIZER INC-2009191733

PATIENT
  Sex: Male
  Weight: 70.3 kg

DRUGS (14)
  1. DETROL LA [Suspect]
     Indication: HYPERTONIC BLADDER
     Dosage: 4 MG, 1X/DAY
  2. DETROL LA [Suspect]
     Indication: INCONTINENCE
  3. WARFARIN SODIUM [Concomitant]
     Dosage: 1 MG, 1X/DAY
  4. DIGOXIN [Concomitant]
     Dosage: 125 UG, 1X/DAY
  5. TRAMADOL [Concomitant]
     Dosage: 50 MG, UNK
  6. AMLODIPINE [Concomitant]
     Dosage: 10 MG, 1X/DAY
  7. RAMIPRIL [Concomitant]
     Dosage: 10 MG, 1X/DAY
  8. ARICEPT [Concomitant]
     Dosage: 10 MG, 1X/DAY
  9. FUROSEMIDE [Concomitant]
     Dosage: 20 MG, 2X/DAY
  10. POTASSIUM [Concomitant]
     Dosage: UNK
  11. PULMICORT [Concomitant]
     Dosage: UNK
  12. VITAMIN B-12 [Concomitant]
     Dosage: UNK
  13. CHONDROITIN/GLUCOSAMINE/METHYLSULFONYLMETHANE [Concomitant]
     Dosage: UNK
  14. CENTRUM SILVER [Concomitant]
     Dosage: UNK

REACTIONS (1)
  - DRUG INEFFECTIVE [None]
